FAERS Safety Report 20109750 (Version 1)
Quarter: 2021Q4

REPORT INFORMATION
  Report Type: Other
  Country: None (occurrence: US)
  Receive Date: 20211124
  Receipt Date: 20211124
  Transmission Date: 20220303
  Serious: Yes (Other)
  Sender: FDA-Public Use
  Company Number: US-B.Braun Medical Inc.-2122288

PATIENT
  Age: 30 Year
  Sex: Female

DRUGS (1)
  1. MAGNESIUM SULFATE IN DEXTROSE [Suspect]
     Active Substance: MAGNESIUM SULFATE

REACTIONS (3)
  - Exposure during pregnancy [Recovered/Resolved]
  - Hyperkalaemia [Recovered/Resolved]
  - Hypermagnesaemia [Recovered/Resolved]
